FAERS Safety Report 7673431-4 (Version None)
Quarter: 2011Q3

REPORT INFORMATION
  Report Type: 
  Country: None (occurrence: None)
  Receive Date: 20110810
  Receipt Date: 20110808
  Transmission Date: 20111222
  Serious: No
  Sender: FDA-Public Use
  Company Number: US-PFIZER INC-2011182542

PATIENT
  Sex: Female
  Weight: 56.689 kg

DRUGS (5)
  1. LIPITOR [Suspect]
     Indication: BLOOD CHOLESTEROL INCREASED
     Dosage: 10 MG, UNK
     Route: 048
  2. LIPITOR [Suspect]
     Dosage: 20 MG, UNK
     Route: 048
  3. LIPITOR [Suspect]
     Dosage: 15 MG, UNK
     Route: 048
  4. LORAZEPAM [Concomitant]
     Indication: SLEEP DISORDER
     Dosage: 0.5 MG, UNK
  5. VAGIFEM [Concomitant]
     Indication: HORMONE THERAPY
     Dosage: UNK

REACTIONS (3)
  - BACK PAIN [None]
  - CHEST PAIN [None]
  - WHITE BLOOD CELL COUNT INCREASED [None]
